FAERS Safety Report 15053807 (Version 1)
Quarter: 2018Q2

REPORT INFORMATION
  Report Type: Report from Study
  Country: US (occurrence: US)
  Receive Date: 20180622
  Receipt Date: 20180622
  Transmission Date: 20180711
  Serious: No
  Sender: FDA-Public Use
  Company Number: US-AMGEN-USASL2016016750

PATIENT
  Age: 78 Year
  Sex: Male

DRUGS (5)
  1. NPLATE [Suspect]
     Active Substance: ROMIPLOSTIM
     Dosage: 580 TO 600 MCG , QWK
     Route: 065
  2. NPLATE [Suspect]
     Active Substance: ROMIPLOSTIM
     Dosage: 500 MUG, UNK
     Route: 065
     Dates: start: 201606
  3. NPLATE [Suspect]
     Active Substance: ROMIPLOSTIM
     Dosage: 580 MUG, UNK
     Route: 065
  4. NPLATE [Suspect]
     Active Substance: ROMIPLOSTIM
     Indication: IMMUNE THROMBOCYTOPENIC PURPURA
     Dosage: 500 MUG, QWK
     Route: 065
     Dates: start: 20101231
  5. NPLATE [Suspect]
     Active Substance: ROMIPLOSTIM
     Dosage: 750 MUG, UNK
     Route: 065
     Dates: start: 20160608

REACTIONS (2)
  - Platelet count decreased [Unknown]
  - Overdose [Unknown]

NARRATIVE: CASE EVENT DATE: 20160608
